FAERS Safety Report 8430299-6 (Version None)
Quarter: 2012Q2

REPORT INFORMATION
  Report Type: 
  Country: None (occurrence: None)
  Receive Date: 20120606
  Receipt Date: 20120606
  Transmission Date: 20120825
  Serious: Yes (Other)
  Sender: FDA-Public Use
  Company Number: None

PATIENT
  Sex: Female

DRUGS (1)
  1. ENBREL [Suspect]
     Dosage: 25MG 2 TIMES A WK SQ
     Route: 058
     Dates: start: 20120126, end: 20120511

REACTIONS (1)
  - FUNGAL INFECTION [None]
